FAERS Safety Report 15725053 (Version 2)
Quarter: 2020Q1

REPORT INFORMATION
  Report Type: Report from Study
  Country: IT (occurrence: IT)
  Receive Date: 20181214
  Receipt Date: 20200304
  Transmission Date: 20200409
  Serious: Yes (Other)
  Sender: FDA-Public Use
  Company Number: IT-MYLANLABS-2018M1092712

PATIENT
  Age: 74 Year
  Sex: Male

DRUGS (4)
  1. ASPIRIN                            /00002701/ [Concomitant]
     Active Substance: ASPIRIN
     Dosage: UNK
     Route: 065
  2. ENALAPRIL [Suspect]
     Active Substance: ENALAPRIL
     Indication: HYPERTENSION
     Dosage: 1 DOSAGE FORM, QD, (1 TABLET, QD)
     Route: 048
  3. PEPTAZOL                           /01263204/ [Concomitant]
     Active Substance: PANTOPRAZOLE SODIUM
     Dosage: UNK
     Route: 065
  4. TORVAST [Concomitant]
     Active Substance: ATORVASTATIN
     Dosage: UNK
     Route: 065

REACTIONS (3)
  - Drug ineffective [Recovering/Resolving]
  - Chest pain [Recovering/Resolving]
  - Blood pressure increased [Recovering/Resolving]

NARRATIVE: CASE EVENT DATE: 20180414
